FAERS Safety Report 7483998-7 (Version None)
Quarter: 2011Q2

REPORT INFORMATION
  Report Type: 
  Country: None (occurrence: None)
  Receive Date: 20110517
  Receipt Date: 20110509
  Transmission Date: 20111010
  Serious: Yes (Hospitalization)
  Sender: FDA-Public Use
  Company Number: DE-AMGEN-DEUSP2011017164

PATIENT
  Sex: Male

DRUGS (1)
  1. ENBREL [Suspect]
     Indication: ANKYLOSING SPONDYLITIS
     Dosage: UNK DOSE THREE TIMES PER WEEK
     Route: 058
     Dates: start: 20030101

REACTIONS (4)
  - ADJUSTMENT DISORDER WITH DEPRESSED MOOD [None]
  - FATIGUE [None]
  - DEPRESSION [None]
  - SLEEP DISORDER [None]
